FAERS Safety Report 6125654-3 (Version None)
Quarter: 2009Q1

REPORT INFORMATION
  Report Type: 
  Country: None (occurrence: None)
  Receive Date: 20090320
  Receipt Date: 20090311
  Transmission Date: 20090719
  Serious: Yes (Hospitalization)
  Sender: FDA-Public Use
  Company Number: DE-ELI_LILLY_AND_COMPANY-DE200903002925

PATIENT
  Age: 38 Year
  Sex: Female
  Weight: 78 kg

DRUGS (6)
  1. ZYPREXA [Suspect]
     Indication: SCHIZOPHRENIA
     Dosage: 20 MG, DAILY (1/D)
     Route: 048
     Dates: start: 20081120, end: 20091121
  2. ZYPREXA [Suspect]
     Dosage: 30 MG, DAILY (1/D)
     Route: 048
     Dates: start: 20081122, end: 20081215
  3. ZYPREXA [Suspect]
     Dosage: 20 MG, DAILY (1/D)
     Route: 048
     Dates: start: 20081216, end: 20081217
  4. ZYPREXA [Suspect]
     Dosage: 7.5 MG, DAILY (1/D)
     Route: 048
     Dates: start: 20081218, end: 20081219
  5. TAVOR [Concomitant]
  6. SERTRALINE [Concomitant]
     Dosage: 50 MG, DAILY (1/D)

REACTIONS (2)
  - GALACTORRHOEA [None]
  - OVERDOSE [None]
